FAERS Safety Report 4730129-X (Version None)
Quarter: 2005Q3

REPORT INFORMATION
  Report Type: 
  Country: None (occurrence: None)
  Receive Date: 20050728
  Receipt Date: 20050720
  Transmission Date: 20060218
  Serious: Yes (Death, Hospitalization, Other)
  Sender: FDA-Public Use
  Company Number: 213733

PATIENT

DRUGS (3)
  1. RAPTIVA [Suspect]
     Dosage: 1 MG/KG, 1/WEEK
     Dates: start: 20040914
  2. METHOTREXATE [Suspect]
  3. NSAIDS (NON-STEROIDAL ANTI-INFLAMMATORY DRUG NOS) [Concomitant]

REACTIONS (4)
  - ASCITES [None]
  - HEPATIC CIRRHOSIS [None]
  - OEDEMA PERIPHERAL [None]
  - PERIORBITAL OEDEMA [None]
